FAERS Safety Report 11262978 (Version 1)
Quarter: 2015Q3

REPORT INFORMATION
  Report Type: Spontaneous
  Country: CA (occurrence: CA)
  Receive Date: 20150710
  Receipt Date: 20150710
  Transmission Date: 20151125
  Serious: Yes (Other)
  Sender: FDA-Public Use
  Company Number: CA-HOSPIRA-2765391

PATIENT
  Sex: Female

DRUGS (1)
  1. MORPHINE SULPHATE [Suspect]
     Active Substance: MORPHINE SULFATE
     Indication: PRODUCT USED FOR UNKNOWN INDICATION
     Dosage: NOT REPORTED
     Route: 042

REACTIONS (4)
  - Self injurious behaviour [Unknown]
  - Drug abuse [Unknown]
  - Drug dependence [Unknown]
  - Maternal exposure during pregnancy [Unknown]
